FAERS Safety Report 5942414-4 (Version None)
Quarter: 2008Q4

REPORT INFORMATION
  Report Type: 
  Country: None (occurrence: None)
  Receive Date: 20081105
  Receipt Date: 20081024
  Transmission Date: 20090506
  Serious: Yes (Other)
  Sender: FDA-Public Use
  Company Number: JP-PFIZER INC-2008088298

PATIENT
  Age: 48 Year
  Sex: Female

DRUGS (4)
  1. ZOLOFT [Suspect]
     Indication: DEPRESSION
     Dosage: DAILY DOSE:50MG
     Route: 048
     Dates: start: 20080215, end: 20081010
  2. EURODIN [Concomitant]
     Route: 048
     Dates: start: 20080220, end: 20080616
  3. RIZE [Concomitant]
     Route: 048
     Dates: start: 20080519, end: 20080616
  4. ROHYPNOL [Concomitant]
     Route: 048
     Dates: start: 20080617

REACTIONS (5)
  - AUTONOMIC NERVOUS SYSTEM IMBALANCE [None]
  - FALL [None]
  - HEAD INJURY [None]
  - SYNCOPE [None]
  - TREMOR [None]
